FAERS Safety Report 8586923-0 (Version None)
Quarter: 2012Q3

REPORT INFORMATION
  Report Type: 
  Country: None (occurrence: None)
  Receive Date: 20120810
  Receipt Date: 20120803
  Transmission Date: 20120928
  Serious: Yes (Other)
  Sender: FDA-Public Use
  Company Number: CHPA2012US016184

PATIENT
  Age: 74 Year
  Sex: Female

DRUGS (10)
  1. EXCEDRIN PM CAPLETS [Suspect]
     Indication: HEADACHE
     Dosage: 2 DF, AT NIGHT
     Route: 048
  2. TAVIST [Concomitant]
     Indication: RHINORRHOEA
     Dosage: 1 OR 2 DF, A DAY
  3. DRAMAMINE                               /NEZ/ [Concomitant]
     Indication: MOTION SICKNESS
     Dosage: UNK, UNK
  4. OMEPRAZOLE [Concomitant]
     Indication: GASTROOESOPHAGEAL REFLUX DISEASE
     Dosage: UNK, UNK
     Dates: start: 20070701
  5. LORTAB [Concomitant]
     Dosage: UNK, UNK
  6. EXCEDRIN TENSION HEADACHE CAPLETS [Suspect]
     Indication: HEADACHE
     Dosage: 2 DF, BID
     Route: 048
  7. LEVOTHYROXINE SODIUM [Concomitant]
     Indication: THYROID DISORDER
     Dosage: UNK, UNK
     Dates: start: 20111201
  8. LAPRAZOL [Concomitant]
     Dosage: UNK, UNK
  9. EXCEDRIN TENSION HEADACHE CAPLETS [Suspect]
     Dosage: 1 DF, AT NIGHT, PRN
     Route: 048
  10. TAVIST [Concomitant]
     Indication: SNEEZING

REACTIONS (2)
  - BRONCHITIS [None]
  - UPPER LIMB FRACTURE [None]
